FAERS Safety Report 15591535 (Version 4)
Quarter: 2019Q1

REPORT INFORMATION
  Report Type: Report from Study
  Country: JP (occurrence: JP)
  Receive Date: 20181106
  Receipt Date: 20190117
  Transmission Date: 20190417
  Serious: Yes (Hospitalization, Other)
  Sender: FDA-Public Use
  Company Number: JP-ASTRAZENECA-2018SF44694

PATIENT
  Age: 52 Year
  Sex: Male
  Weight: 79 kg

DRUGS (13)
  1. ENALAPRIL MALEATE. [Concomitant]
     Active Substance: ENALAPRIL MALEATE
     Indication: ACUTE MYOCARDIAL INFARCTION
     Dosage: 2.5 MG NUMBER OF SEPARATE DOSAGES UNKNOWN
     Route: 048
  2. PITAVASTATIN CALCIUM [Concomitant]
     Active Substance: PITAVASTATIN CALCIUM
     Dosage: 04 MG NUMBER OF SEPARATE DOSAGES UNKNOWN
     Route: 048
  3. HUMALOG [Concomitant]
     Active Substance: INSULIN LISPRO
     Dosage: 26 IU NUMBER OF SEPARATE DOSAGES UNKNOWN
     Route: 065
     Dates: start: 20170930
  4. SPIRONOLACTONE. [Concomitant]
     Active Substance: SPIRONOLACTONE
     Indication: ACUTE MYOCARDIAL INFARCTION
     Dosage: 50 MG NUMBER OF SEPARATE DOSAGES UNKNOWN
     Route: 048
     Dates: start: 20170926
  5. TENELIA [Suspect]
     Active Substance: TENELIGLIPTIN
     Indication: ACUTE MYOCARDIAL INFARCTION
     Route: 065
     Dates: start: 20180501
  6. BRILINTA [Suspect]
     Active Substance: TICAGRELOR
     Indication: ACUTE MYOCARDIAL INFARCTION
     Route: 048
     Dates: start: 20170925
  7. ASPIRIN. [Concomitant]
     Active Substance: ASPIRIN
     Dosage: 100 MG NUMBER OF SEPARATE DOSAGES UNKNOWN
     Route: 065
  8. CARVEDILOL. [Concomitant]
     Active Substance: CARVEDILOL
     Indication: ACUTE MYOCARDIAL INFARCTION
     Dosage: 05 MG NUMBER OF SEPARATE DOSAGES UNKNOWN
     Route: 048
  9. SODIUM RABEPRAZOLE [Concomitant]
     Active Substance: RABEPRAZOLE SODIUM
     Indication: PROPHYLAXIS
     Dosage: 10 MG NUMBER OF SEPARATE DOSAGES UNKNOWN
     Route: 048
  10. DIART [Concomitant]
     Active Substance: AZOSEMIDE
     Dosage: 30 MG NUMBER OF SEPARATE DOSAGES UNKNOWN
     Route: 048
     Dates: start: 20171019
  11. SUGLAT [Suspect]
     Active Substance: IPRAGLIFLOZIN L-PROLINE
     Indication: ACUTE MYOCARDIAL INFARCTION
     Route: 048
     Dates: start: 20180410
  12. ZETIA [Concomitant]
     Active Substance: EZETIMIBE
     Dosage: 10 MG NUMBER OF SEPARATE DOSAGES UNKNOWN
     Route: 048
  13. INSULIN GLARGINE [Concomitant]
     Active Substance: INSULIN GLARGINE
     Dosage: 16 IU NUMBER OF SEPARATE DOSAGES UNKNOWN
     Route: 065

REACTIONS (5)
  - Diarrhoea [Recovered/Resolved]
  - Diabetes mellitus [Not Recovered/Not Resolved]
  - Anaemia [Recovered/Resolved]
  - Enterocolitis [Recovered/Resolved]
  - Hyperuricaemia [Not Recovered/Not Resolved]

NARRATIVE: CASE EVENT DATE: 20170927
